FAERS Safety Report 8499070-3 (Version None)
Quarter: 2012Q3

REPORT INFORMATION
  Report Type: 
  Country: None (occurrence: None)
  Receive Date: 20120710
  Receipt Date: 20120627
  Transmission Date: 20120928
  Serious: Yes (Other)
  Sender: FDA-Public Use
  Company Number: AT-AMGEN-AUTCT2012041103

PATIENT
  Age: 80 Year
  Sex: Female

DRUGS (1)
  1. ETANERCEPT [Suspect]
     Indication: PSORIASIS
     Dosage: UNK
     Dates: start: 20070518, end: 20110517

REACTIONS (2)
  - HAEMATURIA [None]
  - BLADDER CANCER [None]
